FAERS Safety Report 8351443-5 (Version None)
Quarter: 2012Q2

REPORT INFORMATION
  Report Type: 
  Country: None (occurrence: None)
  Receive Date: 20120510
  Receipt Date: 20120502
  Transmission Date: 20120825
  Serious: Yes (Other)
  Sender: FDA-Public Use
  Company Number: GB-ELI_LILLY_AND_COMPANY-GB201111001843

PATIENT
  Sex: Female
  Weight: 120 kg

DRUGS (7)
  1. IBUPROFEN [Concomitant]
     Dosage: 400 MG, QD
  2. DICLOFENAC [Concomitant]
     Dosage: TID
  3. METFORMIN HCL [Concomitant]
     Dosage: 500 MG, BID
  4. ACETAMINOPHEN AND CODEINE PHOSPHATE [Concomitant]
     Dosage: 30 MG, PRN
  5. SERTRALINE HYDROCHLORIDE [Concomitant]
     Dosage: 50 MG, QD
  6. BYDUREON [Suspect]
     Dosage: 2 MG, WEEKLY (1/W)
     Route: 058
     Dates: start: 20111014, end: 20111102
  7. AMITRIPTYLINE HCL [Concomitant]
     Dosage: 25 MG, EACH EVENING

REACTIONS (4)
  - RASH [None]
  - URTICARIA [None]
  - ANGIOEDEMA [None]
  - ACARODERMATITIS [None]
